FAERS Safety Report 14117391 (Version 1)
Quarter: 2017Q4

REPORT INFORMATION
  Report Type: Spontaneous
  Country: AR (occurrence: AR)
  Receive Date: 20171023
  Receipt Date: 20171023
  Transmission Date: 20180321
  Serious: Yes (Other)
  Sender: FDA-Public Use
  Company Number: AR-AMGEN-ARGSP2017159578

PATIENT
  Age: 77 Year
  Sex: Female

DRUGS (1)
  1. ENBREL [Suspect]
     Active Substance: ETANERCEPT
     Indication: RHEUMATOID ARTHRITIS
     Dosage: 50 MG, WEEKLY
     Route: 065
     Dates: start: 20171003

REACTIONS (6)
  - Hand deformity [Unknown]
  - Exostosis [Unknown]
  - Gait disturbance [Unknown]
  - Injection site indentation [Unknown]
  - Joint swelling [Unknown]
  - Wrist deformity [Unknown]
